FAERS Safety Report 9155193 (Version 1)
Quarter: 2013Q1

REPORT INFORMATION
  Report Type: Spontaneous
  Country: US (occurrence: US)
  Receive Date: 20130311
  Receipt Date: 20130311
  Transmission Date: 20140127
  Serious: Yes (Hospitalization, Other)
  Sender: FDA-Public Use
  Company Number: US-ROCHE-772749

PATIENT
  Age: 52 None
  Sex: Male
  Weight: 70.3 kg

DRUGS (1)
  1. ACCUTANE [Suspect]
     Indication: ACNE
     Route: 065
     Dates: start: 198410, end: 198501

REACTIONS (9)
  - Crohn^s disease [Unknown]
  - Inflammatory bowel disease [Unknown]
  - Emotional distress [Unknown]
  - Depressed mood [Unknown]
  - Pyoderma gangrenosum [Unknown]
  - Irritable bowel syndrome [Unknown]
  - Iridocyclitis [Unknown]
  - Osteopenia [Unknown]
  - Arthritis [Unknown]
